FAERS Safety Report 14898173 (Version 2)
Quarter: 2018Q2

REPORT INFORMATION
  Report Type: Spontaneous
  Country: US (occurrence: US)
  Receive Date: 20180515
  Receipt Date: 20180517
  Transmission Date: 20180711
  Serious: No
  Sender: FDA-Public Use
  Company Number: US-SA-2018SA058657

PATIENT
  Sex: Male

DRUGS (4)
  1. SOLOSTAR [Suspect]
     Active Substance: DEVICE
     Dates: start: 2018
  2. SOLOSTAR [Suspect]
     Active Substance: DEVICE
     Dates: start: 2018
  3. TOUJEO [Suspect]
     Active Substance: INSULIN GLARGINE
     Dosage: EVERY AM DOSE:10 UNIT(S)
     Route: 051
     Dates: start: 2018
  4. TOUJEO [Suspect]
     Active Substance: INSULIN GLARGINE
     Dosage: DOSE:40 UNIT(S)
     Route: 051
     Dates: start: 2018

REACTIONS (1)
  - Blood glucose increased [Unknown]

NARRATIVE: CASE EVENT DATE: 2018
